FAERS Safety Report 20995156 (Version 2)
Quarter: 2022Q3

REPORT INFORMATION
  Report Type: Other
  Country: DE (occurrence: DE)
  Receive Date: 20220622
  Receipt Date: 20220808
  Transmission Date: 20221027
  Serious: Yes (Death, Other)
  Sender: FDA-Public Use
  Company Number: None

PATIENT
  Age: 24 Year
  Sex: Female
  Weight: 75 kg

DRUGS (2)
  1. PAROXETINE [Suspect]
     Active Substance: PAROXETINE
     Indication: Social anxiety disorder
     Dosage: UNK (FORMULATION: DROPS)
     Route: 048
     Dates: start: 20220316, end: 20220324
  2. PAROXETINE [Suspect]
     Active Substance: PAROXETINE
     Indication: Depression

REACTIONS (4)
  - Death [Fatal]
  - Dyspnoea [Unknown]
  - Blood glucose abnormal [Unknown]
  - Rash [Unknown]
